FAERS Safety Report 7434968-6 (Version None)
Quarter: 2011Q2

REPORT INFORMATION
  Report Type: 
  Country: None (occurrence: None)
  Receive Date: 20110425
  Receipt Date: 20110420
  Transmission Date: 20111010
  Serious: Yes (Hospitalization)
  Sender: FDA-Public Use
  Company Number: FR-ROCHE-772647

PATIENT
  Sex: Male

DRUGS (9)
  1. KARDEGIC [Suspect]
     Route: 048
     Dates: end: 20110314
  2. ALLOPURINOL [Concomitant]
     Indication: GOUT
  3. SPIRIVA [Concomitant]
  4. IMOVANE [Concomitant]
     Route: 048
     Dates: end: 20110314
  5. DIAMICRON [Concomitant]
     Route: 048
     Dates: end: 20110314
  6. LANTUS [Concomitant]
     Route: 058
  7. ROCEPHIN [Suspect]
     Indication: BRONCHITIS
     Route: 065
     Dates: start: 20110308, end: 20110314
  8. GLUCOPHAGE [Concomitant]
     Route: 048
     Dates: end: 20110314
  9. LASIX [Concomitant]
     Route: 048
     Dates: end: 20110314

REACTIONS (1)
  - GASTROINTESTINAL HAEMORRHAGE [None]
